FAERS Safety Report 9041173 (Version 1)
Quarter: 2013Q1

REPORT INFORMATION
  Report Type: Spontaneous
  Country: US (occurrence: None)
  Receive Date: 20130114
  Receipt Date: 20130114
  Transmission Date: 20140127
  Serious: Yes (Other)
  Sender: FDA-Public Use
  Company Number: FK201300025

PATIENT
  Sex: Male

DRUGS (3)
  1. PROPOFOL [Suspect]
     Indication: SEDATION
  2. FENTANYL (FENTANYL) [Concomitant]
  3. VERSED (MIDAZOLAM HYDROCHLORIDE) [Concomitant]

REACTIONS (3)
  - Physical assault [None]
  - Physical assault [None]
  - Sedation [None]
